FAERS Safety Report 4577181-2 (Version None)
Quarter: 2005Q1

REPORT INFORMATION
  Report Type: 
  Country: None (occurrence: None)
  Receive Date: 20050210
  Receipt Date: 20050201
  Transmission Date: 20050727
  Serious: Yes (Hospitalization)
  Sender: FDA-Public Use
  Company Number: FR-BRISTOL-MYERS SQUIBB COMPANY-12849808

PATIENT
  Age: 75 Year
  Sex: Male

DRUGS (12)
  1. APROVEL [Suspect]
     Indication: HYPERTENSION
     Route: 048
     Dates: start: 20020101
  2. MONO-TILDIEM [Concomitant]
     Route: 048
  3. PLAVIX [Concomitant]
     Route: 048
  4. ZOCOR [Concomitant]
     Route: 048
  5. TADENAN [Concomitant]
     Route: 048
  6. TEMESTA [Concomitant]
     Route: 048
  7. LEXOMIL [Concomitant]
     Route: 048
  8. VASTAREL [Concomitant]
     Route: 048
  9. XANTHIUM [Concomitant]
     Route: 048
  10. AUGMENTIN '125' [Concomitant]
     Route: 042
     Dates: start: 20041101, end: 20041101
  11. CIPROFLOXACIN HCL [Concomitant]
  12. FORTUM [Concomitant]

REACTIONS (3)
  - GLOMERULONEPHRITIS [None]
  - LUNG DISORDER [None]
  - RENAL FAILURE ACUTE [None]
